FAERS Safety Report 16676507 (Version 1)
Quarter: 2019Q3

REPORT INFORMATION
  Report Type: Spontaneous
  Country: DE (occurrence: DE)
  Receive Date: 20190807
  Receipt Date: 20190807
  Transmission Date: 20191004
  Serious: Yes (Other)
  Sender: FDA-Public Use
  Company Number: DE-AUROBINDO-AUR-APL-2019-043130

PATIENT

DRUGS (23)
  1. ALCOHOL. [Suspect]
     Active Substance: ALCOHOL
     Dosage: UNK
     Route: 048
  2. ARIPIPRAZOL BETA [Suspect]
     Active Substance: ARIPIPRAZOLE
     Dosage: 10 DOSAGE FORM, UNK
     Route: 048
  3. ARIPIPRAZOL BETA [Suspect]
     Active Substance: ARIPIPRAZOLE
     Dosage: 10 DOSAGE FORM, 1 TOTAL, 10 TABLET/S, ORALLY, PROBABLE EXPOSURE
     Route: 048
     Dates: start: 20190709
  4. OLANZAPIN BASICS [Suspect]
     Active Substance: OLANZAPINE
     Dosage: 16 DOSAGE FORM, 1 TOTAL, 16 TABLET/S, ORALLY, PROBABLE EXPOSURE
     Route: 048
     Dates: start: 20190709
  5. PROMETHAZINE [Suspect]
     Active Substance: PROMETHAZINE HYDROCHLORIDE
     Dosage: 11 DOSAGE FORM, 1 TOTAL, 11 TABLET/S, ORALLY, PROBABLE EXPOSURE
     Route: 048
     Dates: start: 20190709, end: 20190709
  6. OLANZAPIN NEURAXPHARM [Suspect]
     Active Substance: OLANZAPINE
     Dosage: 7 DOSAGE FORM, 1 TOTAL, 7 TABLET/S, ORALLY, PROBABLE EXPOSURE
     Route: 048
     Dates: start: 20190709
  7. OLANZAPIN NEURAXPHARM [Suspect]
     Active Substance: OLANZAPINE
     Indication: PRODUCT USED FOR UNKNOWN INDICATION
     Dosage: 7 DOSAGE FORM, UNK
     Route: 048
  8. OLANZAPINE AUROBINDO TABLET 7.5MG [Suspect]
     Active Substance: OLANZAPINE
     Indication: PRODUCT USED FOR UNKNOWN INDICATION
     Dosage: UNK
     Route: 048
  9. OLANZAPIN BASICS [Suspect]
     Active Substance: OLANZAPINE
     Indication: PRODUCT USED FOR UNKNOWN INDICATION
     Dosage: UNK
     Route: 048
     Dates: start: 20190709
  10. PROMETHAZINE [Suspect]
     Active Substance: PROMETHAZINE HYDROCHLORIDE
     Dosage: 11 DOSAGE FORM, UNK
     Route: 048
  11. OLANZAPIN BASICS [Suspect]
     Active Substance: OLANZAPINE
     Dosage: 14 DOSAGE FORM, UNK
     Route: 048
  12. VENLAFAXIN HEUMANN [Interacting]
     Active Substance: VENLAFAXINE HYDROCHLORIDE
     Dosage: 11 DOSAGE FORM, UNK
     Route: 048
  13. OLANZAPINE AUROBINDO TABLET 7.5MG [Suspect]
     Active Substance: OLANZAPINE
     Dosage: 7 DOSAGE FORM, 1 TOTAL, 10 TABLET/S, ORALLY, PROBABLE EXPOSURE
     Route: 048
     Dates: start: 20190709
  14. OLANZAPIN NEURAXPHARM [Suspect]
     Active Substance: OLANZAPINE
     Dosage: UNK
     Route: 048
     Dates: start: 20190709
  15. ARIPIPRAZOL BETA [Suspect]
     Active Substance: ARIPIPRAZOLE
     Indication: PRODUCT USED FOR UNKNOWN INDICATION
     Dosage: UNK
     Route: 048
  16. OLANZAPIN BASICS [Suspect]
     Active Substance: OLANZAPINE
     Dosage: 16 DOSAGE FORM, UNK
     Route: 048
  17. PROMETHAZINE [Suspect]
     Active Substance: PROMETHAZINE HYDROCHLORIDE
     Indication: PRODUCT USED FOR UNKNOWN INDICATION
     Dosage: UNK
     Route: 048
  18. OLANZAPIN BASICS [Suspect]
     Active Substance: OLANZAPINE
     Indication: PRODUCT USED FOR UNKNOWN INDICATION
     Dosage: UNK
     Route: 048
  19. VENLAFAXIN HEUMANN [Interacting]
     Active Substance: VENLAFAXINE HYDROCHLORIDE
     Indication: PRODUCT USED FOR UNKNOWN INDICATION
     Dosage: UNK
     Route: 048
  20. OLANZAPIN BASICS [Suspect]
     Active Substance: OLANZAPINE
     Dosage: 14 DOSAGE FORM, 1 TOTAL, 14 TABLET/S, ORALLY, PROBABLE EXPOSURE
     Route: 048
     Dates: start: 20190709
  21. OLANZAPINE AUROBINDO TABLET 7.5MG [Suspect]
     Active Substance: OLANZAPINE
     Dosage: 7 DOSAGE FORM, UNK
     Route: 048
  22. ALCOHOL. [Suspect]
     Active Substance: ALCOHOL
     Indication: PRODUCT USED FOR UNKNOWN INDICATION
     Dosage: 1 UNK, 1 TOTAL, UNKNOWN QUANTITY, ORALLY, PROBABLE EXPOSURE
     Route: 048
     Dates: start: 20190708
  23. VENLAFAXIN HEUMANN [Interacting]
     Active Substance: VENLAFAXINE HYDROCHLORIDE
     Dosage: 11 DOSAGE FORM, 1 TOTAL, 11 TABLET/S, ORALLY, PROBABLE EXPOSURE
     Route: 048
     Dates: start: 20190709

REACTIONS (10)
  - Vomiting [Unknown]
  - Intentional overdose [Unknown]
  - Sinus tachycardia [Unknown]
  - Overdose [Unknown]
  - Somnolence [Unknown]
  - Hypertension [Unknown]
  - Tachycardia [Unknown]
  - Agitation [Unknown]
  - Suicide attempt [Unknown]
  - Suicidal ideation [Unknown]
